FAERS Safety Report 9206234 (Version 4)
Quarter: 2013Q2

REPORT INFORMATION
  Report Type: Spontaneous
  Country: US (occurrence: US)
  Receive Date: 20130403
  Receipt Date: 20130612
  Transmission Date: 20140414
  Serious: No
  Sender: FDA-Public Use
  Company Number: US-PFIZER INC-2013105393

PATIENT
  Age: 47 Year
  Sex: Female
  Weight: 90.7 kg

DRUGS (4)
  1. CHANTIX [Suspect]
     Indication: SMOKING CESSATION THERAPY
     Dosage: 0.5MG DAILY
     Dates: start: 2011
  2. CYMBALTA [Concomitant]
     Indication: DEPRESSION
     Dosage: 50 MG, 2X/DAY
  3. LORAZEPAM [Concomitant]
     Indication: ANXIETY
     Dosage: 2 MG, AS NEEDED
  4. VICODIN [Concomitant]
     Indication: PAIN
     Dosage: 800 MG, AS NEEDED

REACTIONS (3)
  - Malaise [Recovered/Resolved]
  - Vomiting [Recovered/Resolved]
  - Tobacco user [Unknown]
